FAERS Safety Report 17616060 (Version 4)
Quarter: 2020Q4

REPORT INFORMATION
  Report Type: Report from Study
  Country: IN (occurrence: IN)
  Receive Date: 20200402
  Receipt Date: 20201229
  Transmission Date: 20210113
  Serious: Yes (Death, Hospitalization, Other)
  Sender: FDA-Public Use
  Company Number: PHHY2018IN198074

PATIENT
  Age: 77 Year
  Sex: Female

DRUGS (1)
  1. VYMADA [Suspect]
     Active Substance: SACUBITRIL\VALSARTAN
     Indication: CARDIAC FAILURE
     Dosage: 100 MG, BID(1/2)
     Route: 048
     Dates: start: 20181226, end: 20201021

REACTIONS (5)
  - Dyspnoea [Not Recovered/Not Resolved]
  - Product prescribing error [Unknown]
  - COVID-19 [Fatal]
  - Thyroid disorder [Unknown]
  - Wrong technique in product usage process [Unknown]

NARRATIVE: CASE EVENT DATE: 20181226
